FAERS Safety Report 5524889-8 (Version None)
Quarter: 2007Q4

REPORT INFORMATION
  Report Type: 
  Country: None (occurrence: None)
  Receive Date: 20071119
  Receipt Date: 20071107
  Transmission Date: 20080405
  Serious: Yes (Hospitalization, Other)
  Sender: FDA-Public Use
  Company Number: 2007-02822

PATIENT
  Age: 68 Year
  Sex: Male
  Weight: 87 kg

DRUGS (3)
  1. VELCADE [Suspect]
     Indication: PLASMACYTOMA
     Dosage: 2.60 MG, INTRAVENOUS
     Route: 042
     Dates: start: 20070205, end: 20070215
  2. DEXAMETHASONE [Concomitant]
  3. GRANISETRON  HCL [Concomitant]

REACTIONS (2)
  - GENERAL PHYSICAL HEALTH DETERIORATION [None]
  - PNEUMONIA [None]
